FAERS Safety Report 12901903 (Version 1)
Quarter: 2016Q4

REPORT INFORMATION
  Report Type: Spontaneous
  Country: US (occurrence: US)
  Receive Date: 20161102
  Receipt Date: 20161102
  Transmission Date: 20170207
  Serious: No
  Sender: FDA-Public Use
  Company Number: US-ACTAVIS-2016-15324

PATIENT
  Sex: Male

DRUGS (2)
  1. DROXIDOPA [Suspect]
     Active Substance: DROXIDOPA
     Indication: PARKINSON^S DISEASE
     Route: 065
  2. CARBIDOPA/LEVODOPA (AELLC) [Suspect]
     Active Substance: CARBIDOPA\LEVODOPA
     Indication: PARKINSON^S DISEASE
     Dosage: UNK
     Route: 065
     Dates: start: 2015

REACTIONS (5)
  - Asthenia [Not Recovered/Not Resolved]
  - Dizziness [Not Recovered/Not Resolved]
  - Fall [Unknown]
  - Hypersomnia [Not Recovered/Not Resolved]
  - Blood pressure abnormal [Not Recovered/Not Resolved]
